FAERS Safety Report 6582743-7 (Version None)
Quarter: 2010Q1

REPORT INFORMATION
  Report Type: 
  Country: None (occurrence: None)
  Receive Date: 20100216
  Receipt Date: 20100204
  Transmission Date: 20100710
  Serious: Yes (Hospitalization)
  Sender: FDA-Public Use
  Company Number: FR-PFIZER INC-2010015243

PATIENT
  Age: 61 Year
  Sex: Male
  Weight: 80 kg

DRUGS (6)
  1. SOMATROPIN [Suspect]
     Indication: GROWTH HORMONE DEFICIENCY
     Dosage: 0.2 MG, 1X/DAY
     Dates: start: 20040501
  2. SOMATROPIN [Suspect]
     Dosage: 0.3 MG PER DAY/0.2 MG TWICE PER WEEK
     Dates: start: 20080101, end: 20081001
  3. SOMATROPIN [Suspect]
     Dosage: 0.3 MG, 1X/DAY
     Dates: start: 20090401
  4. ANDROTARDYL [Concomitant]
     Dosage: UNK
  5. TAHOR [Concomitant]
     Dosage: UNK
  6. PERMIXON [Concomitant]
     Dosage: 2 DF, 1X/DAY

REACTIONS (2)
  - AORTIC OCCLUSION [None]
  - THROMBOSIS [None]
